FAERS Safety Report 4834197-6 (Version None)
Quarter: 2005Q4

REPORT INFORMATION
  Report Type: 
  Country: None (occurrence: None)
  Receive Date: 20051122
  Receipt Date: 20051117
  Transmission Date: 20060501
  Serious: Yes (Hospitalization)
  Sender: FDA-Public Use
  Company Number: 2005SE06672

PATIENT
  Age: 74 Year
  Sex: Male

DRUGS (4)
  1. ATACAND [Suspect]
     Route: 048
  2. METOPROLOL SUCCINATE [Suspect]
     Indication: CARDIOVASCULAR EVENT PROPHYLAXIS
     Route: 048
  3. LEVAXIN [Concomitant]
     Route: 048
  4. VERAPAMIL [Concomitant]

REACTIONS (1)
  - HYPOTENSION [None]
